FAERS Safety Report 20824305 (Version 4)
Quarter: 2022Q3

REPORT INFORMATION
  Report Type: Spontaneous
  Country: US (occurrence: US)
  Receive Date: 20220513
  Receipt Date: 20220708
  Transmission Date: 20221026
  Serious: Yes (Hospitalization, Other)
  Sender: FDA-Public Use
  Company Number: US-UNITED THERAPEUTICS-UNT-2022-009163

PATIENT
  Age: 69 Year
  Sex: Female
  Weight: 80.726 kg

DRUGS (7)
  1. REMODULIN [Suspect]
     Active Substance: TREPROSTINIL
     Indication: Pulmonary arterial hypertension
     Dosage: UNK UNK, CONTINUING
     Route: 041
     Dates: start: 20220120
  2. REMODULIN [Suspect]
     Active Substance: TREPROSTINIL
     Dosage: 0.020 ?G/KG, CONTINUING
     Route: 041
     Dates: end: 202205
  3. REMODULIN [Suspect]
     Active Substance: TREPROSTINIL
     Dosage: UNK, CONTINUING
     Route: 041
     Dates: end: 202205
  4. REMODULIN [Suspect]
     Active Substance: TREPROSTINIL
     Dosage: 0.016 ?G/KG, CONTINUING
     Route: 041
     Dates: start: 202205, end: 202205
  5. REMODULIN [Suspect]
     Active Substance: TREPROSTINIL
     Dosage: 0.018 ?G/KG, CONTINUING
     Route: 041
     Dates: start: 202205
  6. TADALAFIL [Concomitant]
     Active Substance: TADALAFIL
     Indication: Product used for unknown indication
     Dosage: UNK
     Route: 065
  7. ELIQUIS [Concomitant]
     Active Substance: APIXABAN
     Indication: Product used for unknown indication
     Dosage: UNK
     Route: 065

REACTIONS (8)
  - Loss of consciousness [Recovered/Resolved]
  - Pulmonary hypertension [Recovering/Resolving]
  - Nausea [Recovered/Resolved]
  - Decreased appetite [Recovered/Resolved]
  - Dizziness [Recovered/Resolved]
  - Fall [Recovered/Resolved]
  - Hypotension [Recovered/Resolved]
  - Weight decreased [Recovered/Resolved]

NARRATIVE: CASE EVENT DATE: 20220522
